FAERS Safety Report 5502274-2 (Version None)
Quarter: 2007Q4

REPORT INFORMATION
  Report Type: 
  Country: None (occurrence: None)
  Receive Date: 20071030
  Receipt Date: 20071012
  Transmission Date: 20080405
  Serious: Yes (Hospitalization)
  Sender: FDA-Public Use
  Company Number: GB-WYE-G00467607

PATIENT
  Age: 57 Year
  Sex: Male

DRUGS (2)
  1. EFFEXOR [Suspect]
     Indication: SUICIDAL IDEATION
     Route: 048
     Dates: start: 20061101, end: 20070201
  2. EFFEXOR [Suspect]
     Indication: DEPRESSION
     Dosage: ALTERNATE DOSE: 75MG AND 37.5MG ONCE DAILY
     Route: 048
     Dates: start: 20070201

REACTIONS (1)
  - INTRAOCULAR PRESSURE INCREASED [None]
